FAERS Safety Report 6473842-9 (Version None)
Quarter: 2009Q4

REPORT INFORMATION
  Report Type: 
  Country: None (occurrence: None)
  Receive Date: 20091204
  Receipt Date: 20091124
  Transmission Date: 20100525
  Serious: No
  Sender: FDA-Public Use
  Company Number: US-MYLANLABS-2009S1017145

PATIENT
  Age: 27 Year
  Sex: Female
  Weight: 54.89 kg

DRUGS (3)
  1. AMNESTEEM [Suspect]
     Indication: ACNE
     Route: 048
     Dates: start: 20090720, end: 20090824
  2. AMNESTEEM [Suspect]
     Route: 048
     Dates: start: 20090825, end: 20090922
  3. M.V.I. [Concomitant]
     Route: 048

REACTIONS (5)
  - HAEMATOCRIT ABNORMAL [None]
  - LABORATORY TEST ABNORMAL [None]
  - LEUKOPENIA [None]
  - MEAN CELL VOLUME ABNORMAL [None]
  - WHITE BLOOD CELL COUNT DECREASED [None]
